FAERS Safety Report 6444430-5 (Version None)
Quarter: 2009Q4

REPORT INFORMATION
  Report Type: 
  Country: None (occurrence: None)
  Receive Date: 20091110
  Receipt Date: 20090825
  Transmission Date: 20100525
  Serious: Yes (Hospitalization)
  Sender: FDA-Public Use
  Company Number: 1000007776

PATIENT
  Age: 55 Year
  Sex: Female

DRUGS (2)
  1. SAVELLA [Suspect]
     Indication: FIBROMYALGIA
     Dosage: ORAL
     Route: 048
     Dates: start: 20090601, end: 20090701
  2. LYRICA [Suspect]
     Indication: FIBROMYALGIA
     Dosage: ORAL
     Route: 048
     Dates: start: 20090701

REACTIONS (1)
  - RHABDOMYOLYSIS [None]
